FAERS Safety Report 13046516 (Version 1)
Quarter: 2016Q4

REPORT INFORMATION
  Report Type: Spontaneous
  Country: US (occurrence: US)
  Receive Date: 20161220
  Receipt Date: 20161220
  Transmission Date: 20170207
  Serious: No
  Sender: FDA-Public Use
  Company Number: US-PFIZER INC-2016586839

PATIENT
  Age: 51 Year
  Sex: Female
  Weight: 77.11 kg

DRUGS (5)
  1. ALPRAZOLAM. [Suspect]
     Active Substance: ALPRAZOLAM
     Indication: ANXIETY
     Dosage: 1MG ONE TABLET BY MOUTH THREE TIMES A DAY
     Route: 048
     Dates: start: 2012, end: 20161204
  2. GABAPENTIN. [Concomitant]
     Active Substance: GABAPENTIN
     Indication: NEURALGIA
     Dosage: 800MG ONE CAPSULE BY MOUTH AT NIGHT
     Route: 048
     Dates: start: 2014
  3. FLEXERIL [Concomitant]
     Active Substance: CYCLOBENZAPRINE HYDROCHLORIDE
     Indication: MUSCLE RELAXANT THERAPY
     Dosage: 10MG ONE TABLET BY MOUTH THREE TIMES A DAY WHEN NEEDED
     Route: 048
     Dates: start: 2014
  4. HYDROCODONE/TYLENOL [Concomitant]
     Indication: PAIN
     Dosage: [HYDROCODONE 5 MG]/[PARACETAMOL 325 MG] ONE TABLET BY MOUTH AS NEEDED
     Route: 048
     Dates: start: 2014
  5. ALPRAZOLAM. [Suspect]
     Active Substance: ALPRAZOLAM
     Indication: PANIC ATTACK
     Dosage: 1 MG, 4X/DAY
     Route: 048
     Dates: start: 20161205

REACTIONS (4)
  - Anxiety [Not Recovered/Not Resolved]
  - Panic attack [Not Recovered/Not Resolved]
  - Condition aggravated [Not Recovered/Not Resolved]
  - Drug dispensing error [Not Recovered/Not Resolved]

NARRATIVE: CASE EVENT DATE: 2012
